FAERS Safety Report 23558890 (Version 1)
Quarter: 2024Q1

REPORT INFORMATION
  Report Type: Report from Study
  Country: US (occurrence: None)
  Receive Date: 20240223
  Receipt Date: 20240223
  Transmission Date: 20240410
  Serious: Yes (Hospitalization, Other)
  Sender: FDA-Public Use
  Company Number: 2024A041916

PATIENT
  Age: 25416 Day
  Sex: Female

DRUGS (1)
  1. LYNPARZA [Suspect]
     Active Substance: OLAPARIB
     Indication: Pancreatic carcinoma
     Dosage: 1 TABLET (150MG) BY MOUTH IN THE MORNING AND 2 TABLETS (300MG) BY MOUTH IN THE EVENING
     Route: 048
     Dates: start: 20230601

REACTIONS (3)
  - Atrial fibrillation [Unknown]
  - Full blood count decreased [Unknown]
  - Product dose omission issue [Unknown]

NARRATIVE: CASE EVENT DATE: 20230701
